FAERS Safety Report 17556737 (Version 3)
Quarter: 2020Q2

REPORT INFORMATION
  Report Type: Report from Study
  Country: US (occurrence: US)
  Receive Date: 20200318
  Receipt Date: 20200622
  Transmission Date: 20200713
  Serious: Yes (Hospitalization)
  Sender: FDA-Public Use
  Company Number: NVSC2020US076315

PATIENT
  Sex: Female

DRUGS (6)
  1. PACLITAXEL. [Suspect]
     Active Substance: PACLITAXEL
     Indication: OVARIAN EPITHELIAL CANCER
     Dosage: 70 MG/M2 ON DAY 1, 8 ,15 OF EACH 21 DAY CYCLE
     Route: 042
     Dates: start: 20200127, end: 20200302
  2. INC424A [Suspect]
     Active Substance: RUXOLITINIB
     Indication: OVARIAN EPITHELIAL CANCER
     Dosage: 15 MG, BID ON DAYS 1-21 OF EACH 21 DAY CYCLE
     Route: 048
     Dates: start: 20200127, end: 20200308
  3. PACLITAXEL. [Suspect]
     Active Substance: PACLITAXEL
     Dosage: 70 MG/M2 ON DAY 1, 8 ,15 OF EACH 21 DAY CYCLE
     Route: 042
     Dates: start: 20200316
  4. INC424A [Suspect]
     Active Substance: RUXOLITINIB
     Dosage: 10 MG, BID (1 TO 21 OF EACH 21 DAY CYCLE)
     Route: 048
     Dates: start: 20200316
  5. CARBOPLATIN FOR INJECTION [Suspect]
     Active Substance: CARBOPLATIN
     Dosage: AUC 5 ON DAY 1 OF EACH 21 DAY CYCLE
     Route: 042
     Dates: start: 20200316
  6. CARBOPLATIN FOR INJECTION [Suspect]
     Active Substance: CARBOPLATIN
     Indication: OVARIAN EPITHELIAL CANCER
     Dosage: AUC 5 ON DAY 1 OF EACH 21 DAY CYCLE
     Route: 042
     Dates: start: 20200127, end: 20200309

REACTIONS (1)
  - Neutrophil count decreased [Recovered/Resolved]

NARRATIVE: CASE EVENT DATE: 20200309
